FAERS Safety Report 23168974 (Version 1)
Quarter: 2023Q4

REPORT INFORMATION
  Report Type: Spontaneous
  Country: MX (occurrence: MX)
  Receive Date: 20231110
  Receipt Date: 20231110
  Transmission Date: 20240109
  Serious: Yes (Death, Hospitalization, Other)
  Sender: FDA-Public Use
  Company Number: MX-AMGEN-MEXSP2023198630

PATIENT
  Age: 62 Year
  Sex: Male

DRUGS (2)
  1. XGEVA [Suspect]
     Active Substance: DENOSUMAB
     Indication: Metastases to bone
     Dosage: 120 MILLIGRAM, Q4WK
     Route: 058
  2. OSIMERTINIB [Concomitant]
     Active Substance: OSIMERTINIB
     Indication: Non-small cell lung cancer metastatic
     Dosage: 80 MILLIGRAM, QD (EVERY 24 HOURS)
     Route: 065

REACTIONS (5)
  - Death [Fatal]
  - Non-small cell lung cancer [Unknown]
  - Cognitive disorder [Unknown]
  - Therapy partial responder [Unknown]
  - Drug resistance mutation [Unknown]
